FAERS Safety Report 7043999-X (Version None)
Quarter: 2010Q4

REPORT INFORMATION
  Report Type: 
  Country: None (occurrence: None)
  Receive Date: 20101012
  Receipt Date: 20101012
  Transmission Date: 20110411
  Serious: Yes (Other)
  Sender: FDA-Public Use
  Company Number: None

PATIENT
  Sex: Male
  Weight: 88.4514 kg

DRUGS (1)
  1. MELATONIN [Suspect]

REACTIONS (3)
  - FEELING ABNORMAL [None]
  - MENTAL DISORDER [None]
  - MIDDLE INSOMNIA [None]
